FAERS Safety Report 4356824-2 (Version None)
Quarter: 2004Q2

REPORT INFORMATION
  Report Type: 
  Country: None (occurrence: None)
  Receive Date: 20040507
  Receipt Date: 20040427
  Transmission Date: 20050107
  Serious: Yes (Other)
  Sender: FDA-Public Use
  Company Number: DE-JNJFOC-20040404867

PATIENT
  Age: 11 Year
  Sex: Male

DRUGS (4)
  1. CONCERTA [Suspect]
     Indication: TOURETTE'S DISORDER
     Dosage: 18 MG, IN 1 DAY, ORAL
     Route: 048
     Dates: start: 20040301, end: 20040421
  2. METHYLPHENIDATE HCL [Suspect]
     Indication: TOURETTE'S DISORDER
     Dosage: SEE IMAGE
     Dates: end: 20040301
  3. METHYLPHENIDATE HCL [Suspect]
     Indication: TOURETTE'S DISORDER
     Dosage: SEE IMAGE
     Dates: start: 20040301
  4. CLONIDINE [Concomitant]

REACTIONS (2)
  - CONDITION AGGRAVATED [None]
  - DYSKINESIA [None]
